FAERS Safety Report 24324316 (Version 2)
Quarter: 2024Q4

REPORT INFORMATION
  Report Type: Spontaneous
  Country: JP (occurrence: JP)
  Receive Date: 20240916
  Receipt Date: 20241127
  Transmission Date: 20250115
  Serious: Yes (Death, Other)
  Sender: ALEXION PHARMACEUTICALS
  Company Number: 2024A208679

PATIENT
  Age: 93 Year

DRUGS (1)
  1. ONDEXXYA [Suspect]
     Active Substance: ANDEXANET ALFA
     Indication: Subdural haematoma
     Dosage: DOSE UNKNOWN

REACTIONS (3)
  - Pneumonia bacterial [Fatal]
  - Cerebral infarction [Unknown]
  - Haemorrhage [Unknown]
